FAERS Safety Report 10612722 (Version 3)
Quarter: 2014Q4

REPORT INFORMATION
  Report Type: Spontaneous
  Country: US (occurrence: US)
  Receive Date: 20141127
  Receipt Date: 20141212
  Transmission Date: 20150529
  Serious: Yes (Hospitalization)
  Sender: FDA-Public Use
  Company Number: US-UNITED THERAPEUTICS-UNT-2014-011354

PATIENT
  Age: 66 Year
  Sex: Male
  Weight: 72.56 kg

DRUGS (3)
  1. REMODULIN [Suspect]
     Active Substance: TREPROSTINIL
     Indication: PULMONARY HYPERTENSION
     Dosage: 0.0889 ?G/KG, CONTINUING
     Route: 058
     Dates: start: 20130109
  2. REMODULIN [Suspect]
     Active Substance: TREPROSTINIL
     Dosage: 0.0889 ?G/KG, CONTINUING
     Route: 058
     Dates: start: 20130109
  3. REVATIO [Concomitant]
     Active Substance: SILDENAFIL CITRATE
     Indication: PRODUCT USED FOR UNKNOWN INDICATION

REACTIONS (5)
  - Fluid overload [Unknown]
  - Peripheral swelling [Unknown]
  - Respiratory distress [Unknown]
  - Sinusitis [Unknown]
  - Skin lesion [Unknown]

NARRATIVE: CASE EVENT DATE: 201411
